FAERS Safety Report 19278328 (Version 1)
Quarter: 2021Q2

REPORT INFORMATION
  Report Type: Spontaneous
  Country: CN (occurrence: CN)
  Receive Date: 20210520
  Receipt Date: 20210520
  Transmission Date: 20210717
  Serious: Yes (Other)
  Sender: FDA-Public Use
  Company Number: CN-PFIZER INC-2021540407

PATIENT
  Age: 63 Year
  Sex: Male

DRUGS (1)
  1. METHOTREXATE SODIUM. [Suspect]
     Active Substance: METHOTREXATE SODIUM
     Indication: PERIPHERAL T-CELL LYMPHOMA UNSPECIFIED
     Dosage: 6 G, FOR MORE THAN 24 H, 2 COURSES
     Route: 041

REACTIONS (8)
  - Leukopenia [Unknown]
  - Decreased appetite [Unknown]
  - Muscular weakness [Unknown]
  - Platelet count decreased [Unknown]
  - Mood altered [Unknown]
  - Intellectual disability [Unknown]
  - Slow response to stimuli [Unknown]
  - Dyspnoea [Unknown]
